FAERS Safety Report 6931282-X (Version None)
Quarter: 2010Q3

REPORT INFORMATION
  Report Type: 
  Country: None (occurrence: None)
  Receive Date: 20100816
  Receipt Date: 20100803
  Transmission Date: 20110219
  Serious: Yes (Hospitalization)
  Sender: FDA-Public Use
  Company Number: B0669084A

PATIENT
  Age: 6 Year
  Sex: Male

DRUGS (2)
  1. LAMOTRIGINE [Suspect]
     Indication: EPILEPSY
  2. VALPROIC ACID [Suspect]
     Indication: EPILEPSY

REACTIONS (9)
  - ASCITES [None]
  - COAGULOPATHY [None]
  - CONJUNCTIVAL HYPERAEMIA [None]
  - DRUG RASH WITH EOSINOPHILIA AND SYSTEMIC SYMPTOMS [None]
  - ENCEPHALOPATHY [None]
  - HEPATIC FUNCTION ABNORMAL [None]
  - HYPOTENSION [None]
  - KAWASAKI'S DISEASE [None]
  - PLEURAL EFFUSION [None]
